FAERS Safety Report 11862805 (Version 2)
Quarter: 2016Q2

REPORT INFORMATION
  Report Type: Other
  Country: US (occurrence: US)
  Receive Date: 20151223
  Receipt Date: 20160428
  Transmission Date: 20160815
  Serious: Yes (Hospitalization, Other)
  Sender: FDA-Public Use
  Company Number: US-SHIRE-US201516318

PATIENT
  Sex: Female

DRUGS (2)
  1. GATTEX [Suspect]
     Active Substance: TEDUGLUTIDE\WATER
     Dosage: 0.165 ML, 1X/DAY:QD
     Route: 058
     Dates: start: 2015
  2. GATTEX [Suspect]
     Active Substance: TEDUGLUTIDE\WATER
     Indication: SHORT-BOWEL SYNDROME
     Dosage: 0.33 ML, 1X/DAY:QD
     Route: 058
     Dates: start: 20150820, end: 2015

REACTIONS (5)
  - Drug ineffective [Not Recovered/Not Resolved]
  - Diarrhoea [Unknown]
  - Infection [Recovered/Resolved]
  - Renal disorder [Recovered/Resolved]
  - Gastrointestinal stoma output increased [Not Recovered/Not Resolved]

NARRATIVE: CASE EVENT DATE: 2015
